FAERS Safety Report 17115367 (Version 1)
Quarter: 2019Q4

REPORT INFORMATION
  Report Type: Spontaneous
  Country: CN (occurrence: CN)
  Receive Date: 20191205
  Receipt Date: 20191205
  Transmission Date: 20200122
  Serious: Yes (Hospitalization)
  Sender: FDA-Public Use
  Company Number: CN-PFIZER INC-2019520586

PATIENT
  Age: 46 Year
  Sex: Male

DRUGS (4)
  1. VFEND [Suspect]
     Active Substance: VORICONAZOLE
     Indication: HEPATIC FUNCTION ABNORMAL
     Dosage: 400 MG, 2X/DAY
     Route: 041
     Dates: start: 20191029, end: 20191029
  2. VFEND [Suspect]
     Active Substance: VORICONAZOLE
     Dosage: 150 MG, 2X/DAY
     Route: 041
     Dates: start: 20191101, end: 20191105
  3. VFEND [Suspect]
     Active Substance: VORICONAZOLE
     Dosage: 100 MG, 2X/DAY
     Route: 041
     Dates: start: 20191105, end: 20191108
  4. VFEND [Suspect]
     Active Substance: VORICONAZOLE
     Dosage: 200 MG, 2X/DAY (MAINTAINED DOSAGE)
     Route: 041
     Dates: start: 20191030, end: 20191030

REACTIONS (3)
  - Off label use [Unknown]
  - Product use in unapproved indication [Unknown]
  - Mental disorder [Recovering/Resolving]

NARRATIVE: CASE EVENT DATE: 20191029
